FAERS Safety Report 22107186 (Version 1)
Quarter: 2023Q1

REPORT INFORMATION
  Report Type: Spontaneous
  Country: US (occurrence: US)
  Receive Date: 20230317
  Receipt Date: 20230317
  Transmission Date: 20230417
  Serious: Yes (Other)
  Sender: FDA-Public Use
  Company Number: CA-CHDWIGHTP-2023-CDW-00555

PATIENT
  Age: 79 Year
  Sex: Female

DRUGS (1)
  1. GRAVOL [Suspect]
     Active Substance: DIMENHYDRINATE
     Indication: Product used for unknown indication
     Route: 048
     Dates: start: 2022

REACTIONS (1)
  - Temporal lobe epilepsy [Not Recovered/Not Resolved]

NARRATIVE: CASE EVENT DATE: 20220101
